FAERS Safety Report 5910568-1 (Version None)
Quarter: 2008Q4

REPORT INFORMATION
  Report Type: 
  Country: None (occurrence: None)
  Receive Date: 20081007
  Receipt Date: 20080324
  Transmission Date: 20090506
  Serious: No
  Sender: FDA-Public Use
  Company Number: US-ASTRAZENECA-2008UW05868

PATIENT
  Age: 62 Year
  Sex: Female
  Weight: 73.6 kg

DRUGS (1)
  1. ARIMIDEX [Suspect]
     Indication: BREAST CANCER
     Route: 048
     Dates: start: 20040101

REACTIONS (10)
  - ARTHRALGIA [None]
  - BLOOD CHOLESTEROL INCREASED [None]
  - DIZZINESS [None]
  - DYSPNOEA [None]
  - HOT FLUSH [None]
  - JOINT STIFFNESS [None]
  - OSTEOPOROSIS [None]
  - PARAESTHESIA [None]
  - THERAPEUTIC RESPONSE UNEXPECTED [None]
  - WEIGHT INCREASED [None]
